FAERS Safety Report 15169531 (Version 1)
Quarter: 2018Q3

REPORT INFORMATION
  Report Type: Spontaneous
  Country: PL (occurrence: PL)
  Receive Date: 20180720
  Receipt Date: 20180720
  Transmission Date: 20181010
  Serious: Yes (Death)
  Sender: FDA-Public Use
  Company Number: PL-ROCHE-2155770

PATIENT

DRUGS (1)
  1. ACTILYSE [Suspect]
     Active Substance: ALTEPLASE
     Indication: FIBRINOUS BRONCHITIS
     Route: 065

REACTIONS (4)
  - Product use issue [Fatal]
  - Nervous system disorder [Fatal]
  - Off label use [Fatal]
  - Intentional product use issue [Fatal]
